FAERS Safety Report 10652432 (Version 1)
Quarter: 2014Q4

REPORT INFORMATION
  Report Type: Spontaneous
  Country: US (occurrence: None)
  Receive Date: 20141211
  Receipt Date: 20141211
  Transmission Date: 20150529
  Serious: Yes (Other)
  Sender: FDA-Public Use
  Company Number: US-H14001-14-01751

PATIENT
  Age: 49 Year
  Sex: Male
  Weight: 142.1 kg

DRUGS (2)
  1. DEXAMETHASONE (DEXAMETHASONE SODIUM PHOSPHATE) (UNKNOWN) (DEXAMETHASONE SODIUM PHOSPHATE) [Suspect]
     Active Substance: DEXAMETHASONE
     Indication: PLASMA CELL MYELOMA
  2. BORTEZOMIB (BORTEZOMIB) (UNKNOWN) [Suspect]
     Active Substance: BORTEZOMIB
     Indication: PLASMA CELL MYELOMA

REACTIONS (1)
  - Aortic aneurysm [None]

NARRATIVE: CASE EVENT DATE: 20130215
